FAERS Safety Report 8510356-6 (Version None)
Quarter: 2012Q3

REPORT INFORMATION
  Report Type: 
  Country: None (occurrence: None)
  Receive Date: 20120713
  Receipt Date: 20120706
  Transmission Date: 20120928
  Serious: Yes (Life-Threatening, Hospitalization)
  Sender: FDA-Public Use
  Company Number: JP-PFIZER INC-2012159233

PATIENT
  Age: 53 Year
  Sex: Male

DRUGS (12)
  1. PRAMIPEXOLE DIHYDROCHLORIDE [Suspect]
     Dosage: 0.25 MG, 1 IN 1 D
     Route: 048
     Dates: start: 20120118
  2. ZYPREXA [Suspect]
     Indication: PSYCHIATRIC SYMPTOM
     Dosage: 5 MG, 1 IN 1 D
     Route: 048
     Dates: start: 20120623
  3. DONEPEZIL HCL [Suspect]
     Dosage: 5 MG, 1 IN 1 D
     Route: 048
     Dates: start: 20110705, end: 20120621
  4. ALPRAZOLAM [Suspect]
     Indication: ANXIETY DISORDER
     Dosage: 0.4 MG, 2 IN 1 D
     Route: 048
  5. SEROQUEL [Suspect]
     Indication: PSYCHIATRIC SYMPTOM
     Dosage: 25 MG, 1 IN 1 D
     Route: 048
     Dates: start: 20120621, end: 20120623
  6. DONEPEZIL HCL [Suspect]
     Indication: PARKINSON'S DISEASE
     Dosage: BLINDED THERAPY (3MG OR PLACEBO) (1 IN 1 D)
     Route: 048
     Dates: start: 20110623, end: 20110704
  7. COMTAN [Suspect]
     Indication: PARKINSON'S DISEASE
     Dosage: 100 MG, 1 IN 1 D
     Route: 048
  8. SYMMETREL [Suspect]
     Indication: PARKINSON'S DISEASE
     Dosage: 50 MG, 4 IN 1 D
     Route: 048
     Dates: end: 20120619
  9. PRAMIPEXOLE DIHYDROCHLORIDE [Suspect]
     Indication: PARKINSON'S DISEASE
     Dosage: 1 MG, 2 IN 1 D
     Route: 048
  10. CABERGOLINE [Suspect]
     Indication: PARKINSON'S DISEASE
     Dosage: 1 MG, 1 IN 1 D
     Route: 048
     Dates: end: 20120619
  11. DOPACOL [Suspect]
     Indication: PARKINSON'S DISEASE
     Dosage: 87.5 MG, 6 IN 1 D
     Route: 048
     Dates: start: 20110720
  12. RINDERON-V [Concomitant]
     Indication: DERMATITIS ATOPIC
     Dosage: UNK
     Route: 061

REACTIONS (3)
  - BLEPHAROSPASM [None]
  - ATRIOVENTRICULAR BLOCK COMPLETE [None]
  - PSYCHIATRIC SYMPTOM [None]
